FAERS Safety Report 20368502 (Version 1)
Quarter: 2022Q1

REPORT INFORMATION
  Report Type: Spontaneous
  Country: DE (occurrence: DE)
  Receive Date: 20220124
  Receipt Date: 20220124
  Transmission Date: 20220423
  Serious: No
  Sender: FDA-Public Use
  Company Number: DE-HORMOSAN-2020-01641

PATIENT
  Sex: Female
  Weight: 94 kg

DRUGS (1)
  1. ETHINYL ESTRADIOL\LEVONORGESTREL [Suspect]
     Active Substance: ETHINYL ESTRADIOL\LEVONORGESTREL
     Indication: Product used for unknown indication
     Dosage: 01 DOSAGE FORM, QD
     Route: 065
     Dates: start: 20200306

REACTIONS (3)
  - Anxiety [Unknown]
  - Depression [Unknown]
  - Nightmare [Unknown]

NARRATIVE: CASE EVENT DATE: 20200306
